FAERS Safety Report 11018314 (Version 2)
Quarter: 2015Q2

REPORT INFORMATION
  Report Type: Spontaneous
  Country: US (occurrence: US)
  Receive Date: 20150412
  Receipt Date: 20150524
  Transmission Date: 20150821
  Serious: No
  Sender: FDA-Public Use
  Company Number: US-JNJFOC-20121114886

PATIENT
  Sex: Female
  Weight: 65 kg

DRUGS (1)
  1. DOXIL [Suspect]
     Active Substance: DOXORUBICIN HYDROCHLORIDE
     Indication: LEIOMYOSARCOMA METASTATIC
     Dosage: FOR 28 DAYS
     Route: 042
     Dates: end: 20090812

REACTIONS (1)
  - Palmar-plantar erythrodysaesthesia syndrome [Unknown]
